FAERS Safety Report 17263488 (Version 1)
Quarter: 2019Q4

REPORT INFORMATION
  Report Type: Spontaneous
  Country: US (occurrence: US)
  Receive Date: 20191218
  Receipt Date: 20191218
  Transmission Date: 20200122
  Serious: Yes (Hospitalization)
  Sender: FDA-Public Use
  Company Number: None

PATIENT
  Age: 40 Year
  Sex: Female

DRUGS (5)
  1. SILDENAFIL 20MG [Suspect]
     Active Substance: SILDENAFIL
     Indication: PULMONARY ARTERIAL HYPERTENSION
     Route: 048
     Dates: start: 20170629
  2. VANCOMYCIN [Suspect]
     Active Substance: VANCOMYCIN
  3. REMDULIN [Concomitant]
  4. BUMETANIDE. [Concomitant]
     Active Substance: BUMETANIDE
  5. SPIRONOLACTONE. [Concomitant]
     Active Substance: SPIRONOLACTONE

REACTIONS (5)
  - Dyspnoea [None]
  - Pyrexia [None]
  - Flushing [None]
  - Urticaria [None]
  - Viral infection [None]

NARRATIVE: CASE EVENT DATE: 20191205
